FAERS Safety Report 13419894 (Version 2)
Quarter: 2017Q3

REPORT INFORMATION
  Report Type: Spontaneous
  Country: US (occurrence: US)
  Receive Date: 20170407
  Receipt Date: 20170703
  Transmission Date: 20171127
  Serious: No
  Sender: FDA-Public Use
  Company Number: US-JNJFOC-20170217521

PATIENT
  Age: 69 Year
  Sex: Female
  Weight: 72.58 kg

DRUGS (4)
  1. TOPAMAX [Suspect]
     Active Substance: TOPIRAMATE
     Indication: MIGRAINE PROPHYLAXIS
     Route: 048
  2. TOPAMAX [Suspect]
     Active Substance: TOPIRAMATE
     Indication: MIGRAINE PROPHYLAXIS
     Route: 048
  3. ZETIA [Concomitant]
     Active Substance: EZETIMIBE
     Indication: BLOOD CHOLESTEROL INCREASED
     Route: 065
  4. LISINOPRIL. [Concomitant]
     Active Substance: LISINOPRIL
     Indication: HYPERTENSION
     Route: 065

REACTIONS (8)
  - Abdominal pain upper [Unknown]
  - Muscular weakness [Unknown]
  - Body temperature increased [Unknown]
  - Cough [Unknown]
  - Migraine [Not Recovered/Not Resolved]
  - Withdrawal syndrome [Unknown]
  - Dyspepsia [Unknown]
  - Bronchitis [Unknown]

NARRATIVE: CASE EVENT DATE: 201702
